FAERS Safety Report 8784510 (Version 1)
Quarter: 2012Q4

REPORT INFORMATION
  Report Type: 
  Country: BR (occurrence: BR)
  Receive Date: 20120913
  Receipt Date: 20120913
  Transmission Date: 20130627
  Serious: Yes (Other)
  Sender: FDA-Public Use
  Company Number: BR-AMGEN-BRASP2012015458

PATIENT
  Age: 50 Year
  Sex: Female
  Weight: 75 kg

DRUGS (11)
  1. ENBREL [Suspect]
     Indication: RHEUMATOID ARTHRITIS
     Dosage: 50 mg, qwk
     Route: 058
     Dates: start: 201112
  2. ENBREL [Suspect]
     Dosage: 2x/week
     Route: 058
     Dates: start: 2010
  3. DIUBLOK [Concomitant]
     Indication: HYPERTENSION
     Dosage: UNK UNK, UNK
  4. ENALAPRIL [Concomitant]
     Indication: HYPERTENSION
     Dosage: UNK UNK, UNK
  5. METFORMIN HYDROCHLORIDE [Concomitant]
     Indication: DIABETES MELLITUS
     Dosage: 850 mg, UNK
  6. PREDSIM [Concomitant]
     Dosage: 20 mg, UNK
  7. MELOXICAM [Concomitant]
     Dosage: 15 mg, UNK
  8. METHOTREXATE [Concomitant]
     Dosage: 2.5 mg, UNK
  9. ENDOFOLIN [Concomitant]
     Dosage: UNK UNK, UNK
  10. OMEPRAZOLE [Concomitant]
     Dosage: UNK UNK, UNK
  11. MAXSULID [Concomitant]
     Dosage: UNK UNK, UNK

REACTIONS (10)
  - Wrong technique in drug usage process [Unknown]
  - Musculoskeletal pain [Not Recovered/Not Resolved]
  - Arthritis [Unknown]
  - Pyrexia [Unknown]
  - Arthropathy [Unknown]
  - Rotator cuff syndrome [Unknown]
  - Blood glucose abnormal [Unknown]
  - Haematoma [Unknown]
  - Haemorrhoids [Unknown]
  - Injection site pain [Unknown]
